FAERS Safety Report 6720494-6 (Version None)
Quarter: 2010Q2

REPORT INFORMATION
  Report Type: 
  Country: None (occurrence: None)
  Receive Date: 20100506
  Receipt Date: 20100422
  Transmission Date: 20101027
  Serious: Yes (Congenital Anomaly)
  Sender: FDA-Public Use
  Company Number: 167-20484-09090466

PATIENT
  Sex: Male

DRUGS (1)
  1. INNOHEP [Suspect]
     Indication: DRUG EXPOSURE DURING PREGNANCY
     Dosage: TRANSPLACENTAL
     Route: 064
     Dates: start: 20040708, end: 20050221

REACTIONS (4)
  - CAESAREAN SECTION [None]
  - CONGENITAL ANOMALY [None]
  - CONGENITAL PYELOCALIECTASIS [None]
  - MATERNAL DRUGS AFFECTING FOETUS [None]
